FAERS Safety Report 7476684-0 (Version None)
Quarter: 2011Q2

REPORT INFORMATION
  Report Type: 
  Country: None (occurrence: None)
  Receive Date: 20110512
  Receipt Date: 20110430
  Transmission Date: 20111010
  Serious: Yes (Hospitalization, Other)
  Sender: FDA-Public Use
  Company Number: PHHY2011BR37258

PATIENT
  Sex: Female

DRUGS (8)
  1. EXELON [Suspect]
     Dosage: 18 MG/10 CM PATCH
     Route: 062
  2. LYRICA [Concomitant]
     Indication: DEMENTIA ALZHEIMER'S TYPE
     Dosage: UNK
     Dates: end: 20101101
  3. EXELON [Suspect]
     Indication: DEMENTIA ALZHEIMER'S TYPE
     Dosage: 9 MG/5CM,1 PATCH PER DAY
     Route: 062
     Dates: start: 20100101, end: 20101101
  4. ALDAZIDA [Concomitant]
     Indication: HYPERTENSION
     Dosage: 1 DF, QD
  5. EQUILID [Concomitant]
     Indication: DEMENTIA ALZHEIMER'S TYPE
     Dosage: 1 DF, QD
     Dates: end: 20101101
  6. DIOCTACID [Concomitant]
     Indication: DEMENTIA ALZHEIMER'S TYPE
     Dosage: 1 DF, QD
     Route: 048
     Dates: end: 20101101
  7. MEMANTINE [Concomitant]
     Indication: DEMENTIA ALZHEIMER'S TYPE
     Dosage: 1 DF, QD
     Dates: start: 20100101
  8. NIMODIPINE [Concomitant]
     Indication: HYPERTENSION
     Dosage: 2 DF, DAILY

REACTIONS (2)
  - SEPSIS [None]
  - URINARY TRACT INFECTION [None]
